FAERS Safety Report 6304052-3 (Version None)
Quarter: 2009Q3

REPORT INFORMATION
  Report Type: 
  Country: None (occurrence: None)
  Receive Date: 20090810
  Receipt Date: 20090810
  Transmission Date: 20100115
  Serious: Yes (Other)
  Sender: FDA-Public Use
  Company Number: None

PATIENT
  Age: 32 Year
  Sex: Female
  Weight: 99.7913 kg

DRUGS (1)
  1. MIRENA [Suspect]
     Indication: CONTRACEPTION
     Dosage: INTRA-UTERINE
     Route: 015
     Dates: start: 20090308, end: 20090807

REACTIONS (9)
  - ABDOMINAL PAIN [None]
  - ACNE [None]
  - HAEMORRHAGE [None]
  - MUSCLE SPASMS [None]
  - NAUSEA [None]
  - OVARIAN CYST [None]
  - OVARIAN ENLARGEMENT [None]
  - PELVIC PAIN [None]
  - SMEAR CERVIX ABNORMAL [None]
